FAERS Safety Report 24019231 (Version 1)
Quarter: 2024Q2

REPORT INFORMATION
  Report Type: Spontaneous
  Country: JP (occurrence: JP)
  Receive Date: 20240627
  Receipt Date: 20240627
  Transmission Date: 20240716
  Serious: Yes (Other)
  Sender: FDA-Public Use
  Company Number: JP-TAKEDA-2024TJP009413

PATIENT
  Age: 6 Decade
  Sex: Male

DRUGS (4)
  1. ADCETRIS [Suspect]
     Active Substance: BRENTUXIMAB VEDOTIN
     Indication: Hodgkin^s disease
     Dosage: 1.2 MILLIGRAM/KILOGRAM, Q2WEEKS
     Route: 041
     Dates: start: 20231227
  2. DOXORUBICIN HYDROCHLORIDE [Suspect]
     Active Substance: DOXORUBICIN HYDROCHLORIDE
     Dosage: UNK
     Route: 065
  3. VINBLASTINE SULFATE [Suspect]
     Active Substance: VINBLASTINE SULFATE
     Dosage: UNK
     Route: 065
  4. DACARBAZINE [Suspect]
     Active Substance: DACARBAZINE
     Dosage: UNK
     Route: 065

REACTIONS (1)
  - Cardiac dysfunction [Unknown]

NARRATIVE: CASE EVENT DATE: 20240419
